FAERS Safety Report 7380219-0 (Version None)
Quarter: 2011Q1

REPORT INFORMATION
  Report Type: 
  Country: None (occurrence: None)
  Receive Date: 20110329
  Receipt Date: 20091130
  Transmission Date: 20110831
  Serious: Yes (Death, Other)
  Sender: FDA-Public Use
  Company Number: US-BAYER-200941258NA

PATIENT
  Sex: Female
  Weight: 96.599 kg

DRUGS (7)
  1. NORVASC [Concomitant]
  2. DILANTIN [Concomitant]
  3. LISINOPRIL [Concomitant]
  4. TRASYLOL [Suspect]
     Indication: VASCULAR GRAFT
     Route: 042
     Dates: start: 20080110
  5. ATENOLOL [Concomitant]
  6. ACETYLSALICYLIC ACID SRT [Concomitant]
  7. PLAVIX [Concomitant]

REACTIONS (10)
  - FEAR [None]
  - STRESS [None]
  - EMOTIONAL DISTRESS [None]
  - RENAL INJURY [None]
  - DEATH [None]
  - UNEVALUABLE EVENT [None]
  - PAIN [None]
  - ANXIETY [None]
  - RENAL IMPAIRMENT [None]
  - RENAL FAILURE [None]
